FAERS Safety Report 16925716 (Version 1)
Quarter: 2019Q4

REPORT INFORMATION
  Report Type: Spontaneous
  Country: GB (occurrence: GB)
  Receive Date: 20191016
  Receipt Date: 20191016
  Transmission Date: 20200122
  Serious: Yes (Other)
  Sender: FDA-Public Use
  Company Number: GB-MYLANLABS-2019M1097172

PATIENT
  Age: 71 Year
  Sex: Male

DRUGS (10)
  1. CLINDAMYCIN. [Suspect]
     Active Substance: CLINDAMYCIN
     Indication: SWELLING FACE
     Dosage: 600 MILLIGRAM, QD, FOR 5 DAYS.
     Route: 048
     Dates: start: 20190725
  2. ZOMORPH [Concomitant]
     Active Substance: MORPHINE SULFATE
  3. ZOPICLONE [Concomitant]
     Active Substance: ZOPICLONE
  4. MIRTAZAPINE. [Concomitant]
     Active Substance: MIRTAZAPINE
  5. SIMVASTATIN. [Concomitant]
     Active Substance: SIMVASTATIN
  6. PARACETAMOL [Concomitant]
     Active Substance: ACETAMINOPHEN
  7. OMEPRAZOLE. [Concomitant]
     Active Substance: OMEPRAZOLE
  8. SALBUTAMOL [Concomitant]
     Active Substance: ALBUTEROL
  9. KEPPRA [Concomitant]
     Active Substance: LEVETIRACETAM
  10. METFORMIN [Concomitant]
     Active Substance: METFORMIN HYDROCHLORIDE

REACTIONS (1)
  - International normalised ratio increased [Recovered/Resolved]
